FAERS Safety Report 4942851-0 (Version None)
Quarter: 2006Q1

REPORT INFORMATION
  Report Type: 
  Country: None (occurrence: None)
  Receive Date: 20060309
  Receipt Date: 20060224
  Transmission Date: 20060701
  Serious: Yes (Hospitalization)
  Sender: FDA-Public Use
  Company Number: 2006029240

PATIENT
  Age: 83 Year
  Sex: Female

DRUGS (4)
  1. SUTENT [Suspect]
     Indication: GASTROINTESTINAL STROMAL TUMOUR
     Dosage: SEE IMAGE
     Route: 048
     Dates: start: 20051115
  2. SIMVASTATIN [Concomitant]
  3. SOLPRIN (ACETYLSALICYLATE CALCIUM) [Concomitant]
  4. ALDACTONE [Concomitant]

REACTIONS (2)
  - FALL [None]
  - PYREXIA [None]
